FAERS Safety Report 21026408 (Version 1)
Quarter: 2022Q2

REPORT INFORMATION
  Report Type: Spontaneous
  Country: US (occurrence: None)
  Receive Date: 20220629
  Receipt Date: 20220629
  Transmission Date: 20220721
  Serious: Yes (Hospitalization, Other)
  Sender: FDA-Public Use
  Company Number: None

PATIENT
  Age: 63 Year
  Sex: Female
  Weight: 62.1 kg

DRUGS (1)
  1. ABECMA [Suspect]
     Active Substance: IDECABTAGENE VICLEUCEL
     Indication: Plasma cell myeloma
     Dosage: OTHER QUANTITY : 398.84X10^6 CAR-T ;?FREQUENCY : ONCE;?
     Route: 042
     Dates: start: 20220526, end: 20220526

REACTIONS (5)
  - Cytokine release syndrome [None]
  - Immune effector cell-associated neurotoxicity syndrome [None]
  - Pancytopenia [None]
  - Alloimmunisation [None]
  - Staphylococcal bacteraemia [None]

NARRATIVE: CASE EVENT DATE: 20220615
